FAERS Safety Report 12338567 (Version 1)
Quarter: 2016Q2

REPORT INFORMATION
  Report Type: Spontaneous
  Country: GB (occurrence: GB)
  Receive Date: 20160505
  Receipt Date: 20160505
  Transmission Date: 20160815
  Serious: Yes (Other)
  Sender: FDA-Public Use
  Company Number: GB-BAUSCH-BL-2016-010779

PATIENT
  Age: 49 Year
  Sex: Female

DRUGS (5)
  1. METRONIDAZOLE. [Suspect]
     Active Substance: METRONIDAZOLE
     Indication: TOOTH INFECTION
     Route: 048
     Dates: start: 20160411, end: 20160414
  2. IBUPROFEN. [Concomitant]
     Active Substance: IBUPROFEN
     Indication: PRODUCT USED FOR UNKNOWN INDICATION
  3. BECONASE AQ [Concomitant]
     Active Substance: BECLOMETHASONE DIPROPIONATE MONOHYDRATE
     Indication: PRODUCT USED FOR UNKNOWN INDICATION
  4. COCODAMOL [Concomitant]
     Active Substance: ACETAMINOPHEN\CODEINE PHOSPHATE
     Indication: PRODUCT USED FOR UNKNOWN INDICATION
  5. SYMBICORT [Concomitant]
     Active Substance: BUDESONIDE\FORMOTEROL FUMARATE DIHYDRATE
     Indication: PRODUCT USED FOR UNKNOWN INDICATION

REACTIONS (4)
  - Somnolence [Recovered/Resolved]
  - Oral pain [Recovering/Resolving]
  - Contusion [Recovering/Resolving]
  - Mouth haemorrhage [Recovering/Resolving]

NARRATIVE: CASE EVENT DATE: 20160411
